FAERS Safety Report 4977181-4 (Version None)
Quarter: 2006Q2

REPORT INFORMATION
  Report Type: 
  Country: None (occurrence: None)
  Receive Date: 20060419
  Receipt Date: 20050803
  Transmission Date: 20061013
  Serious: Yes (Hospitalization, Other)
  Sender: FDA-Public Use
  Company Number: US-MERCK-0508USA01130

PATIENT
  Age: 46 Year
  Sex: Male
  Weight: 98 kg

DRUGS (3)
  1. VIOXX [Suspect]
     Indication: ARTHRITIS
     Route: 048
     Dates: start: 20030122, end: 20040930
  2. MOTRIN [Concomitant]
     Route: 065
  3. ZYRTEC [Concomitant]
     Route: 065

REACTIONS (2)
  - CARDIAC DISORDER [None]
  - INTRACARDIAC THROMBUS [None]
